FAERS Safety Report 4971863-6 (Version None)
Quarter: 2006Q2

REPORT INFORMATION
  Report Type: 
  Country: None (occurrence: None)
  Receive Date: 20060413
  Receipt Date: 20051118
  Transmission Date: 20061013
  Serious: Yes (Hospitalization)
  Sender: FDA-Public Use
  Company Number: US-MERCK-0511USA03388

PATIENT
  Age: 68 Year
  Sex: Male
  Weight: 114 kg

DRUGS (5)
  1. VIOXX [Suspect]
     Indication: BACK PAIN
     Route: 048
     Dates: start: 20000316, end: 20011206
  2. GLUCOVANCE [Concomitant]
     Route: 065
  3. TOPROL-XL [Concomitant]
     Route: 065
  4. GLYBURIDE [Concomitant]
     Route: 065
  5. NITROGLYCERIN [Concomitant]
     Route: 060

REACTIONS (6)
  - BACK PAIN [None]
  - CEREBROVASCULAR ACCIDENT [None]
  - DEPRESSION [None]
  - DYSPEPSIA [None]
  - FISTULA [None]
  - HYPERTENSION [None]
